FAERS Safety Report 16833293 (Version 1)
Quarter: 2019Q4

REPORT INFORMATION
  Report Type: Spontaneous
  Country: US (occurrence: US)
  Receive Date: 20190920
  Receipt Date: 20190920
  Transmission Date: 20200122
  Serious: Yes (Hospitalization)
  Sender: FDA-Public Use
  Company Number: None

PATIENT
  Age: 64 Year
  Sex: Male

DRUGS (5)
  1. LASIX [Concomitant]
     Active Substance: FUROSEMIDE
  2. HUMIRA [Suspect]
     Active Substance: ADALIMUMAB
     Indication: PSORIASIS
     Dosage: ?          OTHER FREQUENCY:QOWK;?
     Route: 058
     Dates: start: 20190808
  3. LISINOPRIL. [Concomitant]
     Active Substance: LISINOPRIL
  4. CELEBREX [Concomitant]
     Active Substance: CELECOXIB
  5. HUMULIN NOS [Concomitant]
     Active Substance: INSULIN HUMAN

REACTIONS (1)
  - Oedema [None]

NARRATIVE: CASE EVENT DATE: 20190913
